FAERS Safety Report 10615700 (Version 1)
Quarter: 2014Q4

REPORT INFORMATION
  Report Type: Spontaneous
  Country: US (occurrence: None)
  Receive Date: 20141125
  Receipt Date: 20141125
  Transmission Date: 20150529
  Serious: No
  Sender: FDA-Public Use
  Company Number: None

PATIENT
  Age: 48 Year
  Sex: Male

DRUGS (1)
  1. OTEZLA [Suspect]
     Active Substance: APREMILAST
     Dosage: ONE TABLET BID ORAL
     Route: 048

REACTIONS (3)
  - Headache [None]
  - Sinus headache [None]
  - No therapeutic response [None]
